FAERS Safety Report 21064171 (Version 1)
Quarter: 2022Q3

REPORT INFORMATION
  Report Type: Spontaneous
  Country: US (occurrence: None)
  Receive Date: 20220709
  Receipt Date: 20220709
  Transmission Date: 20221026
  Serious: Yes (Other)
  Sender: FDA-Public Use
  Company Number: None

PATIENT
  Age: 60 Year
  Sex: Female
  Weight: 51.75 kg

DRUGS (1)
  1. ALENDRONATE [Suspect]
     Active Substance: ALENDRONATE SODIUM
     Indication: Osteoporosis
     Dosage: OTHER QUANTITY : 1 CAPSULE(S);?OTHER FREQUENCY : 1/WEEK;?
     Route: 048
     Dates: start: 20220709, end: 20220709

REACTIONS (1)
  - Illness [None]

NARRATIVE: CASE EVENT DATE: 20220709
